FAERS Safety Report 6754561-8 (Version None)
Quarter: 2010Q2

REPORT INFORMATION
  Report Type: 
  Country: None (occurrence: None)
  Receive Date: 20100603
  Receipt Date: 20100524
  Transmission Date: 20101027
  Serious: Yes (Other)
  Sender: FDA-Public Use
  Company Number: CHPA2010US09048

PATIENT
  Age: 83 Year
  Sex: Female
  Weight: 47.619 kg

DRUGS (2)
  1. EXCEDRIN (MIGRAINE) [Suspect]
     Dosage: 4 DF, ONCE/SINGLE
     Route: 048
  2. EXCEDRIN (MIGRAINE) [Suspect]
     Dosage: 2 DF, 2-3 TIMES A DAY
     Route: 048

REACTIONS (4)
  - BLINDNESS [None]
  - GLAUCOMA [None]
  - INCORRECT DOSE ADMINISTERED [None]
  - INTENTIONAL DRUG MISUSE [None]
